FAERS Safety Report 18713087 (Version 1)
Quarter: 2021Q1

REPORT INFORMATION
  Report Type: Spontaneous
  Country: US (occurrence: US)
  Receive Date: 20210107
  Receipt Date: 20210107
  Transmission Date: 20210419
  Serious: No
  Sender: FDA-Public Use
  Company Number: US-CLARUS THERAPEUTICS, INC.-2020-JATENZO-000010

PATIENT

DRUGS (2)
  1. JATENZO [Suspect]
     Active Substance: TESTOSTERONE UNDECANOATE
     Indication: BLOOD TESTOSTERONE DECREASED
     Dosage: 237 MILLIGRAM, BID
     Route: 048
     Dates: start: 20200623
  2. JATENZO [Suspect]
     Active Substance: TESTOSTERONE UNDECANOATE
     Dosage: 396 MILLIGRAM, BID
     Route: 048

REACTIONS (3)
  - Fatigue [Unknown]
  - Libido decreased [Unknown]
  - Blood testosterone decreased [Not Recovered/Not Resolved]

NARRATIVE: CASE EVENT DATE: 20200623
